FAERS Safety Report 6933601-7 (Version None)
Quarter: 2010Q3

REPORT INFORMATION
  Report Type: 
  Country: None (occurrence: None)
  Receive Date: 20100820
  Receipt Date: 20100811
  Transmission Date: 20110219
  Serious: Yes (Other)
  Sender: FDA-Public Use
  Company Number: US-JNJFOC-20100804197

PATIENT
  Sex: Female
  Weight: 72.58 kg

DRUGS (3)
  1. TOPAMAX [Suspect]
     Indication: MIGRAINE PROPHYLAXIS
     Dosage: 50 MG, 1 IN MORNING AND 2 IN EVENING.
     Route: 048
  2. TOPAMAX [Suspect]
     Dosage: 50 MG, 1 IN MORNING AND 2 IN EVENING.
     Route: 048
  3. TOPIRAMATE [Suspect]
     Indication: MIGRAINE PROPHYLAXIS
     Dosage: 50 MG, 1 IN MORNING AND 2 IN EVENING.
     Route: 048

REACTIONS (5)
  - ATTENTION DEFICIT/HYPERACTIVITY DISORDER [None]
  - BLINDNESS TRANSIENT [None]
  - DRUG EXPOSURE DURING PREGNANCY [None]
  - MIGRAINE [None]
  - VOMITING [None]
